FAERS Safety Report 4737580-2 (Version None)
Quarter: 2005Q3

REPORT INFORMATION
  Report Type: 
  Country: None (occurrence: None)
  Receive Date: 20050809
  Receipt Date: 20050512
  Transmission Date: 20060218
  Serious: No
  Sender: FDA-Public Use
  Company Number: US-GLAXOSMITHKLINE-A0558316A

PATIENT
  Age: 65 Year
  Sex: Female

DRUGS (1)
  1. COMMIT [Suspect]

REACTIONS (3)
  - DRUG ABUSER [None]
  - DRUG WITHDRAWAL SYNDROME [None]
  - NAUSEA [None]
